FAERS Safety Report 9412102 (Version 1)
Quarter: 2013Q2

REPORT INFORMATION
  Report Type: Spontaneous
  Country: US (occurrence: None)
  Receive Date: 20130422
  Receipt Date: 20130422
  Transmission Date: 20140414
  Serious: Yes (Other)
  Sender: FDA-Public Use
  Company Number: 2013P1002680

PATIENT
  Age: 53 Year
  Sex: Male

DRUGS (1)
  1. INFUMORPH [Suspect]

REACTIONS (1)
  - Device dislocation [None]
